FAERS Safety Report 16533749 (Version 4)
Quarter: 2019Q4

REPORT INFORMATION
  Report Type: Spontaneous
  Country: US (occurrence: US)
  Receive Date: 20190705
  Receipt Date: 20191002
  Transmission Date: 20200122
  Serious: Yes (Other)
  Sender: FDA-Public Use
  Company Number: US-JNJFOC-20190634545

PATIENT
  Age: 57 Year
  Sex: Male
  Weight: 120.31 kg

DRUGS (13)
  1. PROPRANOLOL [Concomitant]
     Active Substance: PROPRANOLOL HYDROCHLORIDE
     Route: 048
  2. SIMPONI [Suspect]
     Active Substance: GOLIMUMAB
     Indication: COLITIS ULCERATIVE
     Route: 058
  3. ESTER C                            /00008001/ [Concomitant]
     Active Substance: ASCORBIC ACID
     Route: 048
  4. IBUPROFEN. [Concomitant]
     Active Substance: IBUPROFEN
     Indication: PAIN
     Route: 048
  5. PAROXETINE. [Concomitant]
     Active Substance: PAROXETINE
     Route: 048
  6. BACLOFEN. [Concomitant]
     Active Substance: BACLOFEN
     Route: 048
  7. MERCAPTOPURINE. [Concomitant]
     Active Substance: MERCAPTOPURINE
     Route: 048
  8. IRON [Concomitant]
     Active Substance: IRON
     Route: 048
  9. PRILOSEC [Concomitant]
     Active Substance: OMEPRAZOLE MAGNESIUM
     Route: 048
  10. PROBIOTIC                          /06395501/ [Concomitant]
     Active Substance: BIFIDOBACTERIUM ANIMALIS LACTIS
     Route: 048
  11. MELOXICAM. [Concomitant]
     Active Substance: MELOXICAM
     Route: 048
  12. SIMPONI [Suspect]
     Active Substance: GOLIMUMAB
     Route: 058
  13. LOPID [Concomitant]
     Active Substance: GEMFIBROZIL
     Route: 048

REACTIONS (4)
  - Fall [Unknown]
  - Drug delivery system malfunction [Unknown]
  - Hernia [Recovered/Resolved]
  - Craniocerebral injury [Unknown]

NARRATIVE: CASE EVENT DATE: 2017
